FAERS Safety Report 7486294-7 (Version None)
Quarter: 2011Q2

REPORT INFORMATION
  Report Type: 
  Country: None (occurrence: None)
  Receive Date: 20110517
  Receipt Date: 20110504
  Transmission Date: 20111010
  Serious: Yes (Hospitalization, Other)
  Sender: FDA-Public Use
  Company Number: GB-UCBSA-031477

PATIENT
  Age: 23 Year
  Sex: Female

DRUGS (4)
  1. VIMPAT [Suspect]
     Indication: FRONTAL LOBE EPILEPSY
     Route: 048
     Dates: start: 20110329, end: 20110401
  2. TOPIRAMATE [Concomitant]
     Dosage: FROM LONGSTANDING YEARS; DOSE PER INTAKE:150; TOTAL DAILY DOSE:300
     Route: 048
  3. KEPPRA [Concomitant]
     Dosage: FROM LONGSTANDING YEARS; DOSE PER INTAKE:1500; TOTAL DAILY DOSE:3000
     Route: 048
  4. CLOBAZAM [Concomitant]
     Dosage: FROM LONGSTANDING YEARS; DOSE PER INTAKE:10; TOTAL DAILY DOSE:10
     Route: 048

REACTIONS (2)
  - FEELING ABNORMAL [None]
  - PSYCHOTIC BEHAVIOUR [None]
